FAERS Safety Report 7268443-9 (Version None)
Quarter: 2011Q1

REPORT INFORMATION
  Report Type: 
  Country: None (occurrence: None)
  Receive Date: 20110201
  Receipt Date: 20110126
  Transmission Date: 20110831
  Serious: Yes (Other)
  Sender: FDA-Public Use
  Company Number: JP-PFIZER INC-2011018928

PATIENT
  Age: 83 Year
  Sex: Female

DRUGS (2)
  1. PREDONINE [Concomitant]
     Indication: COLLAGEN DISORDER
  2. LYRICA [Suspect]
     Indication: ARTHRALGIA
     Dosage: UNK
     Dates: start: 20110119

REACTIONS (2)
  - FEELING ABNORMAL [None]
  - HYPOTHERMIA [None]
